FAERS Safety Report 19614944 (Version 1)
Quarter: 2021Q3

REPORT INFORMATION
  Report Type: Spontaneous
  Country: GB (occurrence: GB)
  Receive Date: 20210727
  Receipt Date: 20210727
  Transmission Date: 20211014
  Serious: Yes (Other)
  Sender: FDA-Public Use
  Company Number: GB-JNJFOC-20210747646

PATIENT
  Age: 61 Year
  Sex: Female

DRUGS (10)
  1. COD LIVER OIL [Concomitant]
     Active Substance: COD LIVER OIL
     Indication: ILL-DEFINED DISORDER
     Route: 065
  2. LORATADINE. [Concomitant]
     Active Substance: LORATADINE
     Indication: ILL-DEFINED DISORDER
     Route: 065
     Dates: start: 20210608, end: 20210608
  3. TURMERIC [CURCUMA LONGA] [Concomitant]
     Active Substance: HERBALS\TURMERIC
     Indication: ILL-DEFINED DISORDER
     Route: 065
  4. GLUCOSAMINE PLUS CHONDROITIN [Concomitant]
     Indication: ILL-DEFINED DISORDER
     Route: 065
  5. GLUCOSAMINE SULPHATE [Concomitant]
     Active Substance: GLUCOSAMINE
     Indication: ILL-DEFINED DISORDER
     Route: 065
  6. OXYBUTYNIN HYDROCHLORIDE [Concomitant]
     Active Substance: OXYBUTYNIN CHLORIDE
     Indication: ILL-DEFINED DISORDER
     Route: 065
  7. LEVOTHYROXINE SODIUM. [Interacting]
     Active Substance: LEVOTHYROXINE SODIUM
     Indication: HYPOTHYROIDISM
     Dosage: ONE TABLET EACH MORNING MONDAY TO FRIDAY; TWO TABLETS ON SATURDAY AND SUNDAY
     Route: 065
     Dates: start: 2019
  8. VITAMIN D [ERGOCALCIFEROL] [Concomitant]
     Active Substance: ERGOCALCIFEROL
     Indication: ILL-DEFINED DISORDER
     Route: 065
  9. CETIRIZINE HYDROCHLORIDE. [Suspect]
     Active Substance: CETIRIZINE HYDROCHLORIDE
     Indication: ILL-DEFINED DISORDER
     Route: 065
     Dates: start: 2019, end: 20210607
  10. GINGER [ZINGIBER OFFICINALE] [Concomitant]
     Active Substance: GINGER
     Indication: ILL-DEFINED DISORDER
     Route: 065

REACTIONS (13)
  - Somnolence [Recovering/Resolving]
  - Weight increased [Recovering/Resolving]
  - Wheezing [Recovering/Resolving]
  - Drug interaction [Recovering/Resolving]
  - Chest discomfort [Recovering/Resolving]
  - Hypersensitivity [Recovering/Resolving]
  - Cough [Recovering/Resolving]
  - Therapeutic product effect incomplete [Unknown]
  - Choking sensation [Recovering/Resolving]
  - Hypokinesia [Recovering/Resolving]
  - Fatigue [Recovering/Resolving]
  - Dyspnoea [Recovering/Resolving]
  - Memory impairment [Recovering/Resolving]
